FAERS Safety Report 9285736 (Version 1)
Quarter: 2013Q2

REPORT INFORMATION
  Report Type: Spontaneous
  Country: GB (occurrence: GB)
  Receive Date: 20130513
  Receipt Date: 20130513
  Transmission Date: 20140414
  Serious: Yes (Death, Other)
  Sender: FDA-Public Use
  Company Number: GB-PFIZER INC-2013144723

PATIENT
  Age: 52 Year
  Sex: 0

DRUGS (2)
  1. SILDENAFIL CITRATE [Suspect]
     Dosage: UNK
  2. BOSENTAN [Suspect]
     Dosage: UNK

REACTIONS (1)
  - Death [Fatal]
